FAERS Safety Report 4737802-8 (Version None)
Quarter: 2005Q3

REPORT INFORMATION
  Report Type: 
  Country: None (occurrence: None)
  Receive Date: 20050802
  Receipt Date: 20050729
  Transmission Date: 20060218
  Serious: No
  Sender: FDA-Public Use
  Company Number: A044-002-005694

PATIENT
  Age: 66 Year
  Sex: Male

DRUGS (1)
  1. ARICEPT [Suspect]
     Dosage: 5 MG, 1 IN 1 D; ORAL
     Route: 048
     Dates: start: 20050625

REACTIONS (1)
  - DYSKINESIA [None]
